FAERS Safety Report 9040311 (Version 1)
Quarter: 2013Q1

REPORT INFORMATION
  Report Type: Report from Study
  Country: US (occurrence: US)
  Receive Date: 20130129
  Receipt Date: 20130129
  Transmission Date: 20140127
  Serious: No
  Sender: FDA-Public Use
  Company Number: US-ABBOTT-12P-163-0893280-00

PATIENT
  Sex: Female

DRUGS (2)
  1. HUMIRA 40 MG/0.8 ML PEN [Suspect]
     Indication: COLITIS ULCERATIVE
     Dosage: 160 MG LOADING DOSE (4 PENS)
     Route: 058
     Dates: start: 201107, end: 201107
  2. HUMIRA 40 MG/0.8 ML PEN [Suspect]
     Dosage: 2 PENS, 2 WEEKS LATER
     Route: 058
     Dates: end: 201112

REACTIONS (2)
  - Colitis ulcerative [Unknown]
  - Drug ineffective [Unknown]
